FAERS Safety Report 5138792-9 (Version None)
Quarter: 2006Q4

REPORT INFORMATION
  Report Type: 
  Country: None (occurrence: None)
  Receive Date: 20061024
  Receipt Date: 20060609
  Transmission Date: 20070319
  Serious: No
  Sender: FDA-Public Use
  Company Number: 2006US-04132

PATIENT

DRUGS (1)
  1. ISOTRETINOIN [Suspect]

REACTIONS (1)
  - DISEASE PROGRESSION [None]
